FAERS Safety Report 9844515 (Version 1)
Quarter: 2013Q4

REPORT INFORMATION
  Report Type: Spontaneous
  Country: US (occurrence: None)
  Receive Date: 20131226
  Receipt Date: 20131226
  Transmission Date: 20140711
  Serious: Yes (Hospitalization)
  Sender: FDA-Public Use
  Company Number: OR76229-01

PATIENT
  Age: 27 Year
  Sex: Female

DRUGS (5)
  1. GAMMAPLEX [Suspect]
     Indication: HUMORAL IMMUNE DEFECT
  2. KEPPRA 500 MG [Concomitant]
  3. ORAL DHA 5 MG [Concomitant]
  4. VITAMIN D 2000IU [Concomitant]
  5. ZOFRAN 8MG [Concomitant]

REACTIONS (10)
  - Muscle tightness [None]
  - Musculoskeletal stiffness [None]
  - Muscle swelling [None]
  - Joint stiffness [None]
  - Suffocation feeling [None]
  - Hypoaesthesia [None]
  - Paraesthesia [None]
  - Paraesthesia [None]
  - Meningitis aseptic [None]
  - Meningitis viral [None]
